FAERS Safety Report 5098752-3 (Version None)
Quarter: 2006Q3

REPORT INFORMATION
  Report Type: 
  Country: None (occurrence: None)
  Receive Date: 20060907
  Receipt Date: 20060720
  Transmission Date: 20061208
  Serious: Yes (Other)
  Sender: FDA-Public Use
  Company Number: FR-GLAXOSMITHKLINE-B0431703A

PATIENT
  Age: 73 Year
  Sex: Female

DRUGS (5)
  1. ZOVIRAX [Suspect]
     Indication: HERPES OPHTHALMIC
     Route: 047
     Dates: start: 20060701, end: 20060701
  2. ZELITREX [Concomitant]
     Indication: HERPES OPHTHALMIC
     Route: 048
  3. B12 VITAMIN [Concomitant]
     Route: 047
  4. ARTELAC [Concomitant]
     Route: 047
  5. POVIDONE [Concomitant]
     Route: 047

REACTIONS (9)
  - ABNORMAL SENSATION IN EYE [None]
  - BLINDNESS UNILATERAL [None]
  - DRUG DISPENSING ERROR [None]
  - EYE DISORDER [None]
  - EYE IRRITATION [None]
  - INCORRECT ROUTE OF DRUG ADMINISTRATION [None]
  - VISION BLURRED [None]
  - VISUAL ACUITY REDUCED [None]
  - VISUAL FIELD DEFECT [None]
